FAERS Safety Report 5104907-1 (Version None)
Quarter: 2006Q3

REPORT INFORMATION
  Report Type: 
  Country: None (occurrence: None)
  Receive Date: 20060911
  Receipt Date: 20060911
  Transmission Date: 20061208
  Serious: Yes (Hospitalization)
  Sender: FDA-Public Use
  Company Number: None

PATIENT
  Sex: Female
  Weight: 71.82 kg

DRUGS (3)
  1. CISPLATIN [Suspect]
     Dosage: 88 MG
  2. DOXORUBICIN HYDROCHLORIDE [Suspect]
     Dosage: 79 MG
  3. TAXOL [Suspect]
     Dosage: 280 MG

REACTIONS (1)
  - BLOOD MAGNESIUM DECREASED [None]
